FAERS Safety Report 6760481-5 (Version None)
Quarter: 2010Q2

REPORT INFORMATION
  Report Type: 
  Country: None (occurrence: None)
  Receive Date: 20100604
  Receipt Date: 20100526
  Transmission Date: 20101027
  Serious: No
  Sender: FDA-Public Use
  Company Number: 009299

PATIENT
  Age: 84 Year
  Sex: Male

DRUGS (1)
  1. CILOSTAZOL [Suspect]
     Dosage: ORAL
     Route: 048
     Dates: start: 20080101

REACTIONS (4)
  - CHEST PAIN [None]
  - DEVICE OCCLUSION [None]
  - ELECTROCARDIOGRAM ST SEGMENT ELEVATION [None]
  - THROMBOSIS IN DEVICE [None]
